FAERS Safety Report 10694849 (Version 2)
Quarter: 2015Q1

REPORT INFORMATION
  Report Type: Report from Study
  Country: BR (occurrence: BR)
  Receive Date: 20150107
  Receipt Date: 20150107
  Transmission Date: 20150721
  Serious: Yes (Death, Hospitalization, Other)
  Sender: FDA-Public Use
  Company Number: PHHY2014BR156863

PATIENT
  Sex: Female

DRUGS (2)
  1. INSULIN [Concomitant]
     Active Substance: INSULIN NOS
     Indication: DIABETES MELLITUS
     Dosage: UNK UNK, BID (1 APPLICATION IN THE MORNING AND 1 AT NIGHT)
     Route: 065
  2. SANDOSTATIN LAR DEPOT [Suspect]
     Active Substance: OCTREOTIDE ACETATE
     Indication: ACROMEGALY
     Dosage: UNK, QMO (EVERY 30 DAYS)
     Route: 065
     Dates: end: 201411

REACTIONS (5)
  - Pneumonia [Fatal]
  - Nosocomial infection [Fatal]
  - Therapeutic response decreased [Unknown]
  - Infection [Fatal]
  - Post procedural complication [Fatal]
